FAERS Safety Report 14648522 (Version 6)
Quarter: 2019Q1

REPORT INFORMATION
  Report Type: Report from Study
  Country: CA (occurrence: CA)
  Receive Date: 20180316
  Receipt Date: 20190201
  Transmission Date: 20190417
  Serious: Yes (Hospitalization, Other)
  Sender: FDA-Public Use
  Company Number: CA-TAKEDA-2018TUS006286

PATIENT
  Age: 32 Year
  Sex: Male

DRUGS (15)
  1. VEDOLIZUMAB [Suspect]
     Active Substance: VEDOLIZUMAB
     Dosage: 300 MG, UNK
     Route: 042
  2. MELATONIN [Concomitant]
     Active Substance: MELATONIN
     Dosage: 6 MG, QD
  3. VITAMIN D [Concomitant]
     Active Substance: CHOLECALCIFEROL
     Dosage: UNK UNK, QD
  4. VEDOLIZUMAB [Suspect]
     Active Substance: VEDOLIZUMAB
     Dosage: 300 MG, UNK
     Route: 042
     Dates: start: 20180424
  5. VEDOLIZUMAB [Suspect]
     Active Substance: VEDOLIZUMAB
     Indication: CROHN^S DISEASE
     Dosage: 300 MG, UNK
     Route: 042
     Dates: start: 20171011
  6. VEDOLIZUMAB [Suspect]
     Active Substance: VEDOLIZUMAB
     Dosage: 300 MILLIGRAM
     Route: 042
  7. LORAZEPAM. [Concomitant]
     Active Substance: LORAZEPAM
     Dosage: UNK
  8. RISPERIDONE. [Concomitant]
     Active Substance: RISPERIDONE
     Dosage: 2 MG, QD
  9. FISH OIL [Concomitant]
     Active Substance: FISH OIL
     Dosage: 10 ML, QD
  10. LOPERAMIDE [Concomitant]
     Active Substance: LOPERAMIDE
     Dosage: UNK
     Route: 048
  11. VITAMIN D [Concomitant]
     Active Substance: CHOLECALCIFEROL
     Dosage: 1000 IU, QD
  12. VEDOLIZUMAB [Suspect]
     Active Substance: VEDOLIZUMAB
     Dosage: 300 MG, Q4WEEKS
     Route: 042
     Dates: start: 20180215
  13. SALOFALK                           /00000301/ [Concomitant]
     Active Substance: MESALAMINE
     Dosage: UNK
  14. 5-AMINOSALICYLIC ACID [Concomitant]
     Active Substance: MESALAMINE
     Dosage: 1000 MG, BID
     Route: 054
  15. FLORADIX [Concomitant]
     Active Substance: IRON
     Dosage: 10 ML, QD

REACTIONS (14)
  - Gastrointestinal stoma output increased [Recovered/Resolved]
  - Off label use [Unknown]
  - Polydipsia [Recovered/Resolved]
  - Psychotic disorder [Recovering/Resolving]
  - Adjustment disorder with disturbance of conduct [Recovered/Resolved]
  - Anorectal cellulitis [Recovered/Resolved]
  - Rectal abscess [Unknown]
  - Delirium [Recovered/Resolved]
  - Hyponatraemia [Recovering/Resolving]
  - Anal abscess [Unknown]
  - Insomnia [Unknown]
  - Mood swings [Not Recovered/Not Resolved]
  - Suicide attempt [Unknown]
  - Suicidal ideation [Unknown]

NARRATIVE: CASE EVENT DATE: 201801
